FAERS Safety Report 4509886-3 (Version None)
Quarter: 2004Q4

REPORT INFORMATION
  Report Type: 
  Country: None (occurrence: None)
  Receive Date: 20041124
  Receipt Date: 20041115
  Transmission Date: 20050328
  Serious: Yes (Other)
  Sender: FDA-Public Use
  Company Number: US-AMGEN-US099340

PATIENT
  Sex: Female
  Weight: 60.4 kg

DRUGS (9)
  1. ARANESP [Suspect]
     Indication: ANAEMIA
     Route: 058
     Dates: start: 20040811, end: 20041101
  2. DILTIAZEM [Concomitant]
     Dates: start: 20040101
  3. ZOCOR [Concomitant]
     Dates: start: 20040101
  4. TENORMIN [Concomitant]
     Dates: start: 20040101
  5. SYNTHROID [Concomitant]
     Dates: start: 20040101
  6. FOSAMAX [Concomitant]
     Dates: start: 20040101
  7. HYDRALAZINE HCL [Concomitant]
     Dates: start: 20040101
  8. EFFEXOR [Concomitant]
     Dates: start: 20040101
  9. MICARDIS [Concomitant]
     Dates: start: 20040101

REACTIONS (5)
  - MACULAR OEDEMA [None]
  - RETINAL HAEMORRHAGE [None]
  - RETINAL VEIN OCCLUSION [None]
  - VISUAL ACUITY REDUCED [None]
  - VITREOUS FLOATERS [None]
